FAERS Safety Report 5167911-3 (Version None)
Quarter: 2006Q4

REPORT INFORMATION
  Report Type: 
  Country: None (occurrence: None)
  Receive Date: 20061208
  Receipt Date: 20060810
  Transmission Date: 20070319
  Serious: Yes (Death, Other)
  Sender: FDA-Public Use
  Company Number: PHBS2006CA12105

PATIENT
  Age: 48 Year
  Sex: Male

DRUGS (2)
  1. INSULIN [Suspect]
     Dates: start: 19960101
  2. CYCLOSPORINE [Suspect]
     Indication: LIVER TRANSPLANT
     Dates: start: 19950101

REACTIONS (27)
  - ASTHENIA [None]
  - BRAIN COMPRESSION [None]
  - BRAIN HERNIATION [None]
  - BRAIN OEDEMA [None]
  - CEREBRAL HAEMATOMA [None]
  - CEREBRAL HAEMORRHAGE [None]
  - CEREBRAL INFARCTION [None]
  - CLONUS [None]
  - COMPUTERISED TOMOGRAM ABNORMAL [None]
  - DIABETES MELLITUS INSULIN-DEPENDENT [None]
  - DIABETIC NEPHROPATHY [None]
  - DIABETIC RETINOPATHY [None]
  - DIALYSIS [None]
  - EXTENSOR PLANTAR RESPONSE [None]
  - GLOMERULONEPHRITIS MEMBRANOPROLIFERATIVE [None]
  - HEPATIC ARTERY STENOSIS [None]
  - HYPERREFLEXIA [None]
  - HYPERTENSION [None]
  - LEUKOENCEPHALOPATHY [None]
  - MICROANGIOPATHIC HAEMOLYTIC ANAEMIA [None]
  - PUPIL FIXED [None]
  - RENAL ARTERITIS [None]
  - RENAL FAILURE ACUTE [None]
  - THROMBOCYTOPENIA [None]
  - THROMBOTIC MICROANGIOPATHY [None]
  - THROMBOTIC THROMBOCYTOPENIC PURPURA [None]
  - VISUAL ACUITY REDUCED [None]
